FAERS Safety Report 6842834-X (Version None)
Quarter: 2010Q3

REPORT INFORMATION
  Report Type: 
  Country: None (occurrence: None)
  Receive Date: 20100714
  Receipt Date: 20070807
  Transmission Date: 20110219
  Serious: No
  Sender: FDA-Public Use
  Company Number: US-PFIZER INC-2007066514

PATIENT
  Sex: Female
  Weight: 81.6 kg

DRUGS (7)
  1. CHANTIX [Suspect]
     Indication: SMOKING CESSATION THERAPY
     Dates: start: 20070804
  2. TRICOR [Concomitant]
  3. LASIX [Concomitant]
  4. OXYGEN [Concomitant]
  5. OTHER RESPIRATORY SYSTEM PRODUCTS [Concomitant]
  6. TIOTROPIUM BROMIDE [Concomitant]
  7. LORTAB [Concomitant]

REACTIONS (4)
  - ABDOMINAL DISCOMFORT [None]
  - HEADACHE [None]
  - MALAISE [None]
  - VOMITING [None]
